FAERS Safety Report 5515400-6 (Version None)
Quarter: 2007Q4

REPORT INFORMATION
  Report Type: 
  Country: None (occurrence: None)
  Receive Date: 20071113
  Receipt Date: 20070207
  Transmission Date: 20080405
  Serious: No
  Sender: FDA-Public Use
  Company Number: A0638759A

PATIENT
  Age: 76 Year
  Sex: Male

DRUGS (10)
  1. COREG [Suspect]
     Indication: HYPERTENSION
     Dosage: 25MG TWICE PER DAY
     Route: 048
  2. ZOCOR [Concomitant]
  3. PRILOSEC [Concomitant]
  4. BUMETANIDE [Concomitant]
  5. FLOMAX [Concomitant]
  6. GLYBURIDE [Concomitant]
  7. ASPIRIN [Concomitant]
  8. FOLIC ACID [Concomitant]
  9. MAGNESIUM SULFATE [Concomitant]
  10. TYLENOL [Concomitant]

REACTIONS (3)
  - DRUG INEFFECTIVE [None]
  - OVERDOSE [None]
  - PHARMACEUTICAL PRODUCT COMPLAINT [None]
